FAERS Safety Report 12370529 (Version 7)
Quarter: 2020Q2

REPORT INFORMATION
  Report Type: Spontaneous
  Country: CA (occurrence: CA)
  Receive Date: 20160516
  Receipt Date: 20200605
  Transmission Date: 20200713
  Serious: Yes (Death, Hospitalization, Disabling, Other)
  Sender: FDA-Public Use
  Company Number: PHHY2016CA032800

PATIENT
  Age: 62 Year
  Sex: Male
  Weight: 92 kg

DRUGS (41)
  1. CUBICIN [Suspect]
     Active Substance: DAPTOMYCIN
     Indication: PARASPINAL ABSCESS
     Dosage: UNK UNK, QD
     Route: 042
  2. CUBICIN [Suspect]
     Active Substance: DAPTOMYCIN
     Dosage: 900 MG, QD
     Route: 042
  3. VANCOMYCIN [Suspect]
     Active Substance: VANCOMYCIN
     Indication: INTERVERTEBRAL DISCITIS
  4. VANCOMYCIN [Suspect]
     Active Substance: VANCOMYCIN
     Indication: PARASPINAL ABSCESS
  5. LINEZOLID. [Suspect]
     Active Substance: LINEZOLID
     Indication: PARASPINAL ABSCESS
     Dosage: 600 MG, BID
     Route: 048
  6. DOXYCYCLINE. [Suspect]
     Active Substance: DOXYCYCLINE
     Indication: OSTEOMYELITIS
     Dosage: 100 MG, BID
     Route: 048
     Dates: start: 20160229, end: 20160314
  7. DOXYCYCLINE. [Suspect]
     Active Substance: DOXYCYCLINE
     Indication: OESOPHAGEAL ABSCESS
  8. TIGECYCLINE. [Suspect]
     Active Substance: TIGECYCLINE
     Indication: PARASPINAL ABSCESS
     Dosage: 100 MG, QD
     Route: 042
  9. RIFAMPIN. [Suspect]
     Active Substance: RIFAMPIN
     Indication: OSTEOMYELITIS
     Dosage: 300 MG, BID
     Route: 048
     Dates: start: 20160314, end: 20160322
  10. LINEZOLID. [Suspect]
     Active Substance: LINEZOLID
     Indication: INTERVERTEBRAL DISCITIS
     Dosage: 600 MG, BID
     Route: 048
  11. TIGECYCLINE. [Suspect]
     Active Substance: TIGECYCLINE
     Indication: INADEQUATE DIET
     Dosage: 50 MG, BID
     Route: 042
  12. CUBICIN [Suspect]
     Active Substance: DAPTOMYCIN
     Indication: BURKHOLDERIA CEPACIA COMPLEX INFECTION
     Dosage: 900 MG, QD
     Route: 042
  13. VANCOMYCIN [Suspect]
     Active Substance: VANCOMYCIN
     Indication: SEPSIS
  14. VANCOMYCIN [Suspect]
     Active Substance: VANCOMYCIN
     Indication: BURKHOLDERIA CEPACIA COMPLEX INFECTION
  15. LINEZOLID. [Suspect]
     Active Substance: LINEZOLID
     Indication: INADEQUATE DIET
  16. TIGECYCLINE. [Suspect]
     Active Substance: TIGECYCLINE
     Dosage: 50 MG, BID
     Route: 042
  17. CUBICIN [Suspect]
     Active Substance: DAPTOMYCIN
     Indication: INADEQUATE DIET
     Dosage: 700 MG, QD
     Route: 042
  18. VANCOMYCIN [Suspect]
     Active Substance: VANCOMYCIN
     Indication: INADEQUATE DIET
  19. LINEZOLID. [Suspect]
     Active Substance: LINEZOLID
     Indication: SEPSIS
     Dosage: 600 MG, BID
     Route: 048
  20. TIGECYCLINE. [Suspect]
     Active Substance: TIGECYCLINE
     Indication: OSTEOMYELITIS
     Dosage: 100 MG, ONCE/SINGLE
     Route: 042
     Dates: start: 20160314, end: 20160314
  21. TIGECYCLINE. [Suspect]
     Active Substance: TIGECYCLINE
     Indication: BURKHOLDERIA CEPACIA COMPLEX INFECTION
     Dosage: 50 MG, BID
     Route: 042
  22. RIFAMPIN. [Suspect]
     Active Substance: RIFAMPIN
     Indication: SEPSIS
     Dosage: 300 MG, BID
     Route: 048
  23. CUBICIN [Suspect]
     Active Substance: DAPTOMYCIN
     Indication: INTERVERTEBRAL DISCITIS
     Dosage: 700 MG, QD (APPROX 8 MG/KG)
     Route: 042
     Dates: start: 20160122, end: 20160226
  24. CUBICIN [Suspect]
     Active Substance: DAPTOMYCIN
     Dosage: 700 MG, QD
     Route: 042
  25. LINEZOLID. [Suspect]
     Active Substance: LINEZOLID
     Indication: OSTEOMYELITIS
     Dosage: 600 MG, BID
     Route: 048
     Dates: start: 20160226, end: 20160314
  26. TIGECYCLINE. [Suspect]
     Active Substance: TIGECYCLINE
     Indication: INTERVERTEBRAL DISCITIS
     Dosage: 50 MG, BID
     Route: 042
     Dates: start: 201603, end: 20160322
  27. RIFAMPIN. [Suspect]
     Active Substance: RIFAMPIN
     Indication: INADEQUATE DIET
  28. RIFAMPIN. [Suspect]
     Active Substance: RIFAMPIN
     Indication: BURKHOLDERIA CEPACIA COMPLEX INFECTION
  29. CUBICIN [Suspect]
     Active Substance: DAPTOMYCIN
     Indication: OSTEOMYELITIS
     Dosage: 900 MG, QD (APPROX 10 MG/KG)
     Route: 042
     Dates: start: 20160120, end: 20160121
  30. LINEZOLID. [Suspect]
     Active Substance: LINEZOLID
     Indication: BURKHOLDERIA CEPACIA COMPLEX INFECTION
  31. DOXYCYCLINE. [Suspect]
     Active Substance: DOXYCYCLINE
     Indication: INTERVERTEBRAL DISCITIS
     Dosage: 100 MG, BID
     Route: 048
  32. TIGECYCLINE. [Suspect]
     Active Substance: TIGECYCLINE
     Indication: SEPSIS
     Dosage: 100 MG
     Route: 042
  33. CEFTAROLINE FOSAMIL ACETATE [Suspect]
     Active Substance: CEFTAROLINE FOSAMIL
     Indication: OSTEOMYELITIS
     Dosage: 300 MG, Q12H
     Route: 042
     Dates: start: 20160322, end: 20160401
  34. VANCOMYCIN [Suspect]
     Active Substance: VANCOMYCIN
     Indication: OSTEOMYELITIS
     Dosage: TARGET TROUGH 15-20 MG/L
     Route: 042
     Dates: start: 20151127, end: 20160120
  35. RIFAMPIN. [Suspect]
     Active Substance: RIFAMPIN
     Indication: INTERVERTEBRAL DISCITIS
     Dosage: 300 MG, BID
     Route: 065
  36. CEFTAROLINE FOSAMIL ACETATE [Suspect]
     Active Substance: CEFTAROLINE FOSAMIL
     Indication: INTERVERTEBRAL DISCITIS
     Dosage: 300 MG, BID
     Route: 042
  37. CEFTAROLINE FOSAMIL ACETATE [Suspect]
     Active Substance: CEFTAROLINE FOSAMIL
     Indication: PARASPINAL ABSCESS
     Dosage: 300 MG
     Route: 042
  38. CUBICIN [Suspect]
     Active Substance: DAPTOMYCIN
     Indication: SEPSIS
     Dosage: UNK, QD
     Route: 065
  39. DOXYCYCLINE. [Suspect]
     Active Substance: DOXYCYCLINE
     Indication: PARASPINAL ABSCESS
     Dosage: 100 MG, BID
     Route: 048
  40. RIFAMPIN. [Suspect]
     Active Substance: RIFAMPIN
     Indication: PARASPINAL ABSCESS
     Dosage: 300 MG, BID
     Route: 048
  41. CEFTAROLINE FOSAMIL ACETATE [Suspect]
     Active Substance: CEFTAROLINE FOSAMIL
     Dosage: 300 MG, Q12H
     Route: 042

REACTIONS (8)
  - General physical health deterioration [Fatal]
  - Thrombocytopenia [Unknown]
  - Transaminases increased [Unknown]
  - Treatment failure [Unknown]
  - Off label use [Fatal]
  - Staphylococcal infection [Unknown]
  - Hypophagia [Unknown]
  - Product use in unapproved indication [Fatal]

NARRATIVE: CASE EVENT DATE: 20160107
